FAERS Safety Report 21736871 (Version 1)
Quarter: 2022Q4

REPORT INFORMATION
  Report Type: Spontaneous
  Country: PL (occurrence: PL)
  Receive Date: 20221216
  Receipt Date: 20221216
  Transmission Date: 20230112
  Serious: Yes (Life-Threatening)
  Sender: FDA-Public Use
  Company Number: None

PATIENT
  Age: 10 Year
  Sex: Male
  Weight: 29.5 kg

DRUGS (3)
  1. VINCRISTINE [Suspect]
     Active Substance: VINCRISTINE
     Indication: Lymphocytic leukaemia
     Dosage: 1.5 MG/M2, DURATION 21 DAYS
     Dates: start: 20181115, end: 20181206
  2. DAUNORUBICIN [Suspect]
     Active Substance: DAUNORUBICIN
     Indication: Lymphocytic leukaemia
     Dosage: 30 MG/M2, DURATION 21 DAYS
     Dates: start: 20181115, end: 20181206
  3. ONCASPAR [Suspect]
     Active Substance: PEGASPARGASE
     Indication: Lymphocytic leukaemia
     Dosage: 2500 IU , DURATION 14 DAYS
     Dates: start: 20181119, end: 20181203

REACTIONS (4)
  - Ileus paralytic [Recovering/Resolving]
  - Posterior reversible encephalopathy syndrome [Recovering/Resolving]
  - Neuropathy peripheral [Recovering/Resolving]
  - Paraesthesia [Recovering/Resolving]

NARRATIVE: CASE EVENT DATE: 20181213
